FAERS Safety Report 4699010-9 (Version None)
Quarter: 2005Q2

REPORT INFORMATION
  Report Type: 
  Country: None (occurrence: None)
  Receive Date: 20050623
  Receipt Date: 20050623
  Transmission Date: 20051028
  Serious: Yes (Hospitalization, Other)
  Sender: FDA-Public Use
  Company Number: None

PATIENT
  Sex: Male
  Weight: 80 kg

DRUGS (4)
  1. LEUCOVORIN [Suspect]
     Indication: ADENOCARCINOMA
     Dosage: 20 MG/M2
     Dates: start: 20050525
  2. LEUCOVORIN [Suspect]
     Indication: GASTROOESOPHAGEAL CANCER
     Dosage: 20 MG/M2
     Dates: start: 20050525
  3. FLUOROURACIL [Suspect]
     Dosage: 425 MG/M2 CYCLE
  4. ZITHROMYCIN [Concomitant]

REACTIONS (4)
  - BACTERIA STOOL IDENTIFIED [None]
  - CHILLS [None]
  - DEHYDRATION [None]
  - POST PROCEDURAL DIARRHOEA [None]
